FAERS Safety Report 18483179 (Version 1)
Quarter: 2020Q4

REPORT INFORMATION
  Report Type: Spontaneous
  Country: US (occurrence: US)
  Receive Date: 20201109
  Receipt Date: 20201109
  Transmission Date: 20210114
  Serious: No
  Sender: FDA-Public Use
  Company Number: US-ROCHE-2438308

PATIENT
  Age: 50 Year
  Sex: Female

DRUGS (1)
  1. PULMOZYME [Suspect]
     Active Substance: DORNASE ALFA
     Indication: PRODUCT USED FOR UNKNOWN INDICATION
     Dosage: 1MG/ML AMP*REFRIG DOSE 2.5MG/2.5ML
     Route: 050
     Dates: start: 201809

REACTIONS (7)
  - Dizziness [Recovered/Resolved]
  - Headache [Unknown]
  - Diarrhoea [Unknown]
  - Weight increased [Unknown]
  - Back pain [Recovered/Resolved]
  - Constipation [Unknown]
  - Abdominal distension [Unknown]

NARRATIVE: CASE EVENT DATE: 20190729
